FAERS Safety Report 10136494 (Version 2)
Quarter: 2014Q2

REPORT INFORMATION
  Report Type: Spontaneous
  Country: DE (occurrence: DE)
  Receive Date: 20140429
  Receipt Date: 20140520
  Transmission Date: 20141212
  Serious: Yes (Hospitalization)
  Sender: FDA-Public Use
  Company Number: DE-ROCHE-1392119

PATIENT
  Age: 55 Year
  Sex: Male

DRUGS (7)
  1. INTERFERON ALFA-2A [Suspect]
     Indication: MALIGNANT MELANOMA
     Route: 065
     Dates: start: 20120504
  2. INTERFERON ALFA-2A [Suspect]
     Dosage: 10 MIO IU
     Route: 058
     Dates: start: 201205
  3. ZELBORAF [Suspect]
     Indication: MALIGNANT MELANOMA
     Dosage: 4X240 MG AT EACH TIME
     Route: 048
     Dates: start: 20140423, end: 20140428
  4. ZELBORAF [Suspect]
     Route: 048
     Dates: start: 20140502
  5. NOVALGIN (GERMANY) [Concomitant]
     Indication: PAIN
     Dosage: 4 TO 6 TIMES PER DAY AS REQUIRED
     Route: 048
     Dates: start: 20140401
  6. IBUPROFEN [Concomitant]
     Indication: PAIN
     Dosage: TWO TIMES PER DAY AS REQUIRED
     Route: 048
     Dates: start: 20140401
  7. PANTOPRAZOL [Concomitant]
     Route: 048
     Dates: start: 20140422

REACTIONS (2)
  - Retinal detachment [Recovered/Resolved]
  - Malignant neoplasm progression [Unknown]
